FAERS Safety Report 16576898 (Version 1)
Quarter: 2019Q3

REPORT INFORMATION
  Report Type: Spontaneous
  Country: NL (occurrence: NL)
  Receive Date: 20190716
  Receipt Date: 20190716
  Transmission Date: 20191004
  Serious: Yes (Hospitalization)
  Sender: FDA-Public Use
  Company Number: NL-TEVA-2019-NL-1077068

PATIENT
  Age: 64 Year
  Sex: Male

DRUGS (16)
  1. CLOBETASOL CREME [Concomitant]
     Dosage: 4 KEER PER WEEK
  2. MAGNESIUMHYDROXIDE 724 MG [Concomitant]
     Dosage: 1DD1
  3. TAMSULOSINE 0,4 MG [Concomitant]
     Dosage: 1DD1
  4. ACETYLSALICYLZUUR 80 MG [Concomitant]
     Dosage: 1DD1
  5. LEVOTHYROXINE 50 UG [Concomitant]
     Dosage: 1DD1
  6. FENOTEROL/IPRATROPIUM 50/20 UG [Concomitant]
     Dosage: ZN4DD2
  7. PROMETHAZINE 25 MG [Concomitant]
  8. COLECALCIFEROL DRANK [Concomitant]
     Dosage: 100,000 IU MONTHLY
  9. CYPROTERON 50 MG [Concomitant]
     Dosage: 2DD1
  10. MACGOROL/ZOUTEN [Concomitant]
  11. CLOZAPINE TABLET, 200 MG (MILLIGRAM) [Suspect]
     Active Substance: CLOZAPINE
     Indication: SCHIZOPHRENIA
     Dosage: 400 MILLIGRAM DAILY; 1X PER DAY 2 STUKS
     Dates: start: 2012, end: 20190606
  12. SIMVASTATINE 40 MG [Concomitant]
     Active Substance: SIMVASTATIN
     Dosage: 1DD1
  13. SALMETEROL/FLUTICASOL 25/250 UG [Concomitant]
     Dosage: 2DD2
  14. PANTOPRAZOLE SODIUM. [Concomitant]
     Active Substance: PANTOPRAZOLE SODIUM
     Dosage: 1DD1
  15. NATRIUMLAURYLSULFAAT/SORBITOL KLYSMA [Concomitant]
     Dosage: ZN 1 VIA STOMA
  16. TIOTROPIUM 18 UG (=10 UG) [Concomitant]
     Dosage: 1DD1

REACTIONS (1)
  - Colitis ischaemic [Unknown]

NARRATIVE: CASE EVENT DATE: 20190604
